FAERS Safety Report 14941981 (Version 7)
Quarter: 2022Q1

REPORT INFORMATION
  Report Type: Spontaneous
  Country: SE (occurrence: SE)
  Receive Date: 20180527
  Receipt Date: 20220310
  Transmission Date: 20220424
  Serious: Yes (Other)
  Sender: FDA-Public Use
  Company Number: PHHY2018SE006905

PATIENT
  Age: 62 Year
  Sex: Male

DRUGS (4)
  1. ENALAPRIL MALEATE [Interacting]
     Active Substance: ENALAPRIL MALEATE
     Indication: Hypertension
     Dosage: LONG TERM
     Route: 065
  2. CIPROFLOXACIN [Interacting]
     Active Substance: CIPROFLOXACIN
     Indication: Urinary tract infection
     Dosage: UNK
     Route: 065
  3. IBUPROFEN [Interacting]
     Active Substance: IBUPROFEN
     Indication: Arthropathy
     Dosage: UNK
     Route: 065
  4. IBUPROFEN [Interacting]
     Active Substance: IBUPROFEN
     Indication: Musculoskeletal discomfort

REACTIONS (2)
  - Acute kidney injury [Recovering/Resolving]
  - Drug interaction [Unknown]
